FAERS Safety Report 9058333 (Version 2)
Quarter: 2014Q3

REPORT INFORMATION
  Report Type: Spontaneous
  Country: US (occurrence: US)
  Receive Date: 20130211
  Receipt Date: 20140729
  Transmission Date: 20150326
  Serious: Yes (Hospitalization, Other)
  Sender: FDA-Public Use
  Company Number: US-BAYER-2013-015151

PATIENT
  Age: 31 Year
  Sex: Female
  Weight: 128 kg

DRUGS (4)
  1. YASMIN [Suspect]
     Active Substance: DROSPIRENONE\ETHINYL ESTRADIOL
  2. YAZ [Suspect]
     Active Substance: DROSPIRENONE\ETHINYL ESTRADIOL
  3. INSULIN [INSULIN] [Concomitant]
     Active Substance: INSULIN NOS
  4. NIPHREX [Concomitant]
     Indication: IRON DEFICIENCY

REACTIONS (5)
  - Emotional distress [None]
  - Injury [None]
  - Thrombosis [None]
  - Carotid artery thrombosis [Recovered/Resolved]
  - Cerebral infarction [None]

NARRATIVE: CASE EVENT DATE: 200704
